FAERS Safety Report 5459405-2 (Version None)
Quarter: 2007Q3

REPORT INFORMATION
  Report Type: 
  Country: None (occurrence: None)
  Receive Date: 20070919
  Receipt Date: 20070910
  Transmission Date: 20080115
  Serious: Yes (Death)
  Sender: FDA-Public Use
  Company Number: US-JNJFOC-20070902321

PATIENT
  Sex: Male

DRUGS (2)
  1. DURAGESIC-100 [Suspect]
     Indication: ORAL PAIN
     Route: 062
  2. HYDROCODONE [Concomitant]
     Indication: PAIN
     Route: 048

REACTIONS (2)
  - ASPIRATION [None]
  - GASTROOESOPHAGEAL REFLUX DISEASE [None]
